FAERS Safety Report 4606248-5 (Version None)
Quarter: 2005Q1

REPORT INFORMATION
  Report Type: 
  Country: None (occurrence: None)
  Receive Date: 20050116
  Receipt Date: 20041027
  Transmission Date: 20050727
  Serious: Yes (Disabling)
  Sender: FDA-Public Use
  Company Number: HQWYE157728OCT04

PATIENT
  Age: 42 Year
  Sex: Female
  Weight: 59.02 kg

DRUGS (5)
  1. EFFEXOR [Suspect]
     Indication: DEPRESSION
     Dosage: SEE IMAGE
     Dates: start: 20040901, end: 20040101
  2. EFFEXOR [Suspect]
     Indication: DEPRESSION
     Dosage: SEE IMAGE
     Dates: start: 19980801, end: 20040701
  3. EFFEXOR [Suspect]
     Indication: DEPRESSION
     Dosage: SEE IMAGE
     Dates: start: 20040701, end: 20040901
  4. EFFEXOR [Suspect]
     Indication: DEPRESSION
     Dosage: SEE IMAGE
     Dates: start: 20041001
  5. SYNTHROID [Concomitant]

REACTIONS (6)
  - BREAST PAIN [None]
  - DERMATITIS EXFOLIATIVE [None]
  - DIZZINESS [None]
  - DRUG WITHDRAWAL SYNDROME [None]
  - HYPERTROPHY BREAST [None]
  - INSOMNIA [None]
